FAERS Safety Report 5530730-X (Version None)
Quarter: 2007Q4

REPORT INFORMATION
  Report Type: 
  Country: None (occurrence: None)
  Receive Date: 20071128
  Receipt Date: 20071128
  Transmission Date: 20080405
  Serious: Yes (Life-Threatening, Hospitalization, Disabling)
  Sender: FDA-Public Use
  Company Number: None

PATIENT
  Age: 42 Year
  Sex: Male
  Weight: 99.7913 kg

DRUGS (7)
  1. ZYPREXA [Suspect]
     Indication: AGITATION
     Dosage: 10MG AM 25 MG PM BID ORAL
     Route: 048
     Dates: start: 20070401, end: 20070506
  2. ZYPREXA [Suspect]
     Indication: THINKING ABNORMAL
     Dosage: 10MG AM 25 MG PM BID ORAL
     Route: 048
     Dates: start: 20070401, end: 20070506
  3. ZYPREXA [Suspect]
     Indication: AGITATION
     Dosage: 10MG AM 25 MG PM BID ORAL
     Route: 048
     Dates: start: 20070407
  4. ZYPREXA [Suspect]
     Indication: THINKING ABNORMAL
     Dosage: 10MG AM 25 MG PM BID ORAL
     Route: 048
     Dates: start: 20070407
  5. HALDOL (HALOPERIDOL) ? SANDOZ OR MYLAN [Suspect]
     Indication: BIPOLAR DISORDER
     Dosage: ONCE DAILY ORAL
     Route: 048
     Dates: start: 20070416, end: 20070418
  6. TRICOR [Concomitant]
  7. LITHIUM CARBONATE [Concomitant]

REACTIONS (1)
  - AMNESIA [None]
